FAERS Safety Report 4601244-6 (Version None)
Quarter: 2005Q1

REPORT INFORMATION
  Report Type: 
  Country: None (occurrence: None)
  Receive Date: 20050204
  Receipt Date: 20040316
  Transmission Date: 20050727
  Serious: Yes (Other)
  Sender: FDA-Public Use
  Company Number: US-SHR-04-022642

PATIENT
  Age: 33 Year
  Sex: Female

DRUGS (2)
  1. MIRENA [Suspect]
     Indication: CONTRACEPTION
     Dosage: 20 MICROG, CONT, INTRA-AMNIOTIC
     Route: 012
     Dates: start: 20030731, end: 20030909
  2. PRENATAL VITAMNINS (MINERALS NOS, NICOTINIC ACID, RETINOL, VITAMIN D N [Concomitant]

REACTIONS (1)
  - UTERINE PERFORATION [None]
